FAERS Safety Report 18895435 (Version 3)
Quarter: 2021Q1

REPORT INFORMATION
  Report Type: Spontaneous
  Country: US (occurrence: US)
  Receive Date: 20210215
  Receipt Date: 20210329
  Transmission Date: 20210420
  Serious: No
  Sender: FDA-Public Use
  Company Number: US-TEVA-2021-US-1879199

PATIENT
  Age: 92 Year
  Sex: Female

DRUGS (10)
  1. ESTRADIOL TRANSDERMAL SYSTEM [Concomitant]
     Active Substance: ESTRADIOL
  2. NYSTATIN. [Concomitant]
     Active Substance: NYSTATIN
  3. ATENOLOL TEVA [Suspect]
     Active Substance: ATENOLOL
     Dosage: 1/2 IN THE MORNING AND 1/2 IN THE EVENING
     Route: 065
     Dates: start: 20160105
  4. GLUCOSAMINE/CHONDR [Concomitant]
  5. PEPCID COMPLETE [Concomitant]
     Active Substance: CALCIUM CARBONATE\FAMOTIDINE\MAGNESIUM HYDROXIDE
  6. MULTI?VITAMIN [Concomitant]
     Active Substance: .ALPHA.-TOCOPHEROL ACETATE, DL-\ASCORBIC ACID\CYANOCOBALAMIN\FLUORIDE ION\FOLIC ACID\NIACIN\PYRIDOXINE\RIBOFLAVIN\THIAMINE\VITAMIN A\VITAMIN D
  7. MAXZIDE [Concomitant]
     Active Substance: HYDROCHLOROTHIAZIDE\TRIAMTERENE
  8. ARTIFICIAL TEARS [Concomitant]
     Active Substance: GLYCERIN\HYPROMELLOSES\POLYETHYLENE GLYCOL 400
  9. ARMOUR THYROID [Concomitant]
     Active Substance: THYROID, PORCINE
  10. NYSTATIN. [Concomitant]
     Active Substance: NYSTATIN

REACTIONS (11)
  - Nausea [Unknown]
  - Nervousness [Not Recovered/Not Resolved]
  - Anxiety [Unknown]
  - Headache [Unknown]
  - Dyspnoea [Not Recovered/Not Resolved]
  - Wheezing [Not Recovered/Not Resolved]
  - Agitation [Unknown]
  - Pruritus [Not Recovered/Not Resolved]
  - Dizziness [Not Recovered/Not Resolved]
  - Cough [Unknown]
  - Drug ineffective [Not Recovered/Not Resolved]
